FAERS Safety Report 20065016 (Version 1)
Quarter: 2021Q4

REPORT INFORMATION
  Report Type: Spontaneous
  Country: US (occurrence: US)
  Receive Date: 20211113
  Receipt Date: 20211113
  Transmission Date: 20220303
  Serious: Yes (Death)
  Sender: FDA-Public Use
  Company Number: US-LUNDBECK-DKLU3040804

PATIENT
  Age: 8 Year
  Sex: Female

DRUGS (5)
  1. SABRIL [Suspect]
     Active Substance: VIGABATRIN
     Indication: Infantile spasms
     Route: 048
     Dates: start: 20160728
  2. SABRIL [Suspect]
     Active Substance: VIGABATRIN
     Indication: Epilepsy
     Route: 048
     Dates: start: 20160728
  3. SABRIL [Suspect]
     Active Substance: VIGABATRIN
     Indication: Neonatal seizure
     Route: 048
     Dates: start: 20160728
  4. SABRIL [Suspect]
     Active Substance: VIGABATRIN
     Indication: Developmental delay
  5. SABRIL [Suspect]
     Active Substance: VIGABATRIN
     Indication: Cerebral palsy

REACTIONS (2)
  - Death [Fatal]
  - Prescribed overdose [Unknown]

NARRATIVE: CASE EVENT DATE: 20211104
